FAERS Safety Report 24041071 (Version 1)
Quarter: 2024Q3

REPORT INFORMATION
  Report Type: Spontaneous
  Country: US (occurrence: None)
  Receive Date: 20240701
  Receipt Date: 20240701
  Transmission Date: 20241017
  Serious: No
  Sender: Public
  Company Number: None

PATIENT
  Sex: 0

DRUGS (2)
  1. PRAVASTATIN [Suspect]
     Active Substance: PRAVASTATIN
  2. PRAVASTATIN [Suspect]
     Active Substance: PRAVASTATIN

REACTIONS (4)
  - Myalgia [None]
  - Headache [None]
  - Dizziness [None]
  - Blood glucose increased [None]

NARRATIVE: CASE EVENT DATE: 20240628
